FAERS Safety Report 10745059 (Version 1)
Quarter: 2015Q1

REPORT INFORMATION
  Report Type: Spontaneous
  Country: IT (occurrence: None)
  Receive Date: 20150126
  Receipt Date: 20150126
  Transmission Date: 20150721
  Serious: Yes (Other)
  Sender: FDA-Public Use
  Company Number: 2706484

PATIENT
  Age: 59 Year
  Sex: Female

DRUGS (1)
  1. PACLITAXEL. [Suspect]
     Active Substance: PACLITAXEL
     Indication: BREAST CANCER
     Dosage: NOT OTHERWISE SPECIFIED
     Route: 042
     Dates: start: 20141211, end: 20141211

REACTIONS (1)
  - Throat tightness [None]

NARRATIVE: CASE EVENT DATE: 20141211
